FAERS Safety Report 7860426-0 (Version None)
Quarter: 2011Q4

REPORT INFORMATION
  Report Type: 
  Country: None (occurrence: None)
  Receive Date: 20111027
  Receipt Date: 20111020
  Transmission Date: 20120403
  Serious: Yes (Death)
  Sender: FDA-Public Use
  Company Number: PHEH2011US07590

PATIENT
  Sex: Female

DRUGS (1)
  1. GLEEVEC [Suspect]
     Indication: PERITONEAL MESOTHELIOMA MALIGNANT
     Dosage: 400 MG, DAILY

REACTIONS (3)
  - BLADDER DISCOMFORT [None]
  - DEATH [None]
  - CYSTITIS [None]
